FAERS Safety Report 11449903 (Version 1)
Quarter: 2015Q3

REPORT INFORMATION
  Report Type: Spontaneous
  Country: US (occurrence: US)
  Receive Date: 20150903
  Receipt Date: 20150903
  Transmission Date: 20151125
  Serious: Yes (Other)
  Sender: FDA-Public Use
  Company Number: US-ROCHE-694469

PATIENT
  Age: 47 Year
  Sex: Male
  Weight: 92.1 kg

DRUGS (4)
  1. RIBAVIRIN. [Suspect]
     Active Substance: RIBAVIRIN
     Indication: HEPATITIS C
     Dosage: DIVIDED DOSES
     Route: 048
  2. PEGASYS [Suspect]
     Active Substance: PEGINTERFERON ALFA-2A
     Indication: HEPATITIS C
     Dosage: FORM: PRE-FILLED SYRINGE
     Route: 058
  3. RIBAVIRIN. [Suspect]
     Active Substance: RIBAVIRIN
     Route: 048
  4. PEGASYS [Suspect]
     Active Substance: PEGINTERFERON ALFA-2A
     Route: 058

REACTIONS (24)
  - Tachycardia [Unknown]
  - Heart rate increased [Unknown]
  - White blood cell count decreased [Unknown]
  - Physical disability [Unknown]
  - Aggression [Unknown]
  - Photosensitivity reaction [Not Recovered/Not Resolved]
  - Haemoglobin decreased [Unknown]
  - Weight decreased [Unknown]
  - Fatigue [Not Recovered/Not Resolved]
  - Feeling cold [Not Recovered/Not Resolved]
  - Pyrexia [Unknown]
  - Dyspnoea [Unknown]
  - Chills [Unknown]
  - Pressure of speech [Not Recovered/Not Resolved]
  - Pain [Recovered/Resolved]
  - Headache [Unknown]
  - Rash papular [Not Recovered/Not Resolved]
  - Hyperhidrosis [Unknown]
  - Loss of consciousness [Unknown]
  - Dyspnoea exertional [Unknown]
  - Anger [Not Recovered/Not Resolved]
  - Violence-related symptom [Unknown]
  - Thyroid disorder [Unknown]
  - Hypoaesthesia [Unknown]

NARRATIVE: CASE EVENT DATE: 20100326
